FAERS Safety Report 22086718 (Version 3)
Quarter: 2023Q1

REPORT INFORMATION
  Report Type: Report from Study
  Country: US (occurrence: US)
  Receive Date: 20230312
  Receipt Date: 20230331
  Transmission Date: 20230418
  Serious: No
  Sender: FDA-Public Use
  Company Number: US-002147023-NVSC2023US051490

PATIENT
  Age: 56 Year
  Sex: Female

DRUGS (2)
  1. KESIMPTA [Suspect]
     Active Substance: OFATUMUMAB
     Indication: Multiple sclerosis
     Dosage: UNK, (1ST DOSE)
     Route: 065
     Dates: start: 20230202
  2. KESIMPTA [Suspect]
     Active Substance: OFATUMUMAB
     Dosage: UNK, (2ND DOSE)
     Route: 065
     Dates: start: 20230301

REACTIONS (6)
  - COVID-19 [Recovered/Resolved]
  - Cough [Unknown]
  - Bronchitis [Unknown]
  - Dyspnoea [Unknown]
  - Asthma [Unknown]
  - Lung disorder [Unknown]

NARRATIVE: CASE EVENT DATE: 20230202
